FAERS Safety Report 8076022-9 (Version None)
Quarter: 2012Q1

REPORT INFORMATION
  Report Type: 
  Country: None (occurrence: None)
  Receive Date: 20120127
  Receipt Date: 20110423
  Transmission Date: 20120608
  Serious: No
  Sender: FDA-Public Use
  Company Number: US-GLAXOSMITHKLINE-A0925363A

PATIENT
  Age: 59 Year
  Sex: Male
  Weight: 159.1 kg

DRUGS (7)
  1. WELLBUTRIN [Suspect]
     Indication: SMOKING CESSATION THERAPY
     Dosage: 1TAB UNKNOWN
     Route: 048
     Dates: start: 20080101, end: 20090701
  2. QUINAPRIL [Concomitant]
     Indication: PRODUCT USED FOR UNKNOWN INDICATION
     Dosage: 10MGD PER DAY
     Route: 048
  3. ASPIRIN [Concomitant]
     Indication: ANTICOAGULANT THERAPY
     Dosage: 325MGD PER DAY
  4. ACTOPLUS MET [Concomitant]
     Indication: DIABETES MELLITUS
     Dosage: 1TAB TWICE PER DAY
     Route: 048
  5. LIPITOR [Concomitant]
     Indication: HYPERTENSION
     Dosage: 40MGD PER DAY
     Route: 048
  6. CHANTIX [Suspect]
     Indication: SMOKING CESSATION THERAPY
     Dosage: .5MGD PER DAY
     Route: 048
     Dates: start: 20090301, end: 20090701
  7. METOPROLOL TARTRATE [Concomitant]
     Indication: MYOCARDIAL INFARCTION
     Dosage: 50MG TWICE PER DAY
     Route: 048

REACTIONS (1)
  - ROTATOR CUFF SYNDROME [None]
